FAERS Safety Report 18207814 (Version 2)
Quarter: 2020Q3

REPORT INFORMATION
  Report Type: Spontaneous
  Country: TR (occurrence: TR)
  Receive Date: 20200828
  Receipt Date: 20200904
  Transmission Date: 20201103
  Serious: Yes (Congenital Anomaly, Other)
  Sender: FDA-Public Use
  Company Number: TR-APOTEX-2020AP016848

PATIENT
  Sex: Male

DRUGS (1)
  1. PAROXETINE HYDROCHLORIDE. [Suspect]
     Active Substance: PAROXETINE HYDROCHLORIDE
     Indication: PRODUCT USED FOR UNKNOWN INDICATION
     Dosage: UNK
     Route: 064

REACTIONS (5)
  - Genitalia external ambiguous [Unknown]
  - Persistent Muellerian duct syndrome [Unknown]
  - Foetal exposure during pregnancy [Unknown]
  - Disorder of sex development [Unknown]
  - Premature baby [Unknown]
